FAERS Safety Report 20358496 (Version 2)
Quarter: 2022Q1

REPORT INFORMATION
  Report Type: Spontaneous
  Country: FR (occurrence: FR)
  Receive Date: 20220120
  Receipt Date: 20220218
  Transmission Date: 20220423
  Serious: Yes (Hospitalization)
  Sender: FDA-Public Use
  Company Number: FR-CELGENE-FRA-20220104102

PATIENT
  Age: 70 Year
  Sex: Male
  Weight: 88 kg

DRUGS (11)
  1. AZACITIDINE [Suspect]
     Active Substance: AZACITIDINE
     Indication: Myelodysplastic syndrome
     Route: 041
     Dates: start: 20210816, end: 20211130
  2. VENETOCLAX [Suspect]
     Active Substance: VENETOCLAX
     Indication: Myelodysplastic syndrome
     Route: 065
  3. VALACYCLOVIR HYDROCHLORIDE [Concomitant]
     Active Substance: VALACYCLOVIR HYDROCHLORIDE
     Indication: Infection prophylaxis
     Route: 048
     Dates: start: 2020
  4. LEUCOVORIN CALCIUM [Concomitant]
     Active Substance: LEUCOVORIN CALCIUM
     Indication: Infection prophylaxis
     Route: 048
     Dates: start: 2020
  5. ALLOPURINOL [Concomitant]
     Active Substance: ALLOPURINOL
     Indication: Prophylaxis
     Route: 048
     Dates: start: 20210916
  6. FLUVASTATIN [Concomitant]
     Active Substance: FLUVASTATIN SODIUM
     Indication: Coronary artery disease
     Route: 048
  7. DEFERASIROX [Concomitant]
     Active Substance: DEFERASIROX
     Indication: Prophylaxis
     Route: 048
  8. POSACONAZOLE [Concomitant]
     Active Substance: POSACONAZOLE
     Indication: Infection prophylaxis
     Route: 048
     Dates: start: 20210918
  9. PENICILLIN V [Concomitant]
     Active Substance: PENICILLIN V
     Indication: Infection prophylaxis
     Route: 048
     Dates: start: 20211026
  10. ATOVAQUONE [Concomitant]
     Active Substance: ATOVAQUONE
     Indication: Infection prophylaxis
     Route: 048
     Dates: start: 20211026
  11. EXJADE [Concomitant]
     Active Substance: DEFERASIROX
     Indication: Prophylaxis
     Dosage: 1080 MILLIGRAM
     Route: 048

REACTIONS (1)
  - Pseudomonal sepsis [Recovered/Resolved]

NARRATIVE: CASE EVENT DATE: 20220104
